FAERS Safety Report 8212173-3 (Version None)
Quarter: 2012Q1

REPORT INFORMATION
  Report Type: 
  Country: None (occurrence: None)
  Receive Date: 20120315
  Receipt Date: 20120307
  Transmission Date: 20120608
  Serious: Yes (Hospitalization)
  Sender: FDA-Public Use
  Company Number: DE-ROCHE-1029322

PATIENT
  Sex: Male
  Weight: 100 kg

DRUGS (2)
  1. ACTEMRA [Suspect]
     Indication: RHEUMATOID ARTHRITIS
     Route: 042
     Dates: start: 20111206, end: 20120103
  2. ACTEMRA [Suspect]
     Dates: start: 20120103

REACTIONS (6)
  - MYALGIA [None]
  - GENERAL PHYSICAL HEALTH DETERIORATION [None]
  - NAUSEA [None]
  - ABDOMINAL PAIN [None]
  - ASTHENIA [None]
  - PANNICULITIS [None]
